FAERS Safety Report 25214900 (Version 1)
Quarter: 2025Q2

REPORT INFORMATION
  Report Type: Spontaneous
  Country: CO (occurrence: CO)
  Receive Date: 20250418
  Receipt Date: 20250418
  Transmission Date: 20250716
  Serious: Yes (Other)
  Sender: SANDOZ
  Company Number: CO-002147023-NVSC2025CO063607

PATIENT
  Sex: Male

DRUGS (1)
  1. EXELON [Suspect]
     Active Substance: RIVASTIGMINE TARTRATE
     Indication: Product used for unknown indication
     Route: 065

REACTIONS (2)
  - Acquired haemophilia [Unknown]
  - Skin reaction [Unknown]

NARRATIVE: CASE EVENT DATE: 20230101
